FAERS Safety Report 18119785 (Version 1)
Quarter: 2020Q3

REPORT INFORMATION
  Report Type: Spontaneous
  Country: AU (occurrence: AU)
  Receive Date: 20200806
  Receipt Date: 20200806
  Transmission Date: 20201103
  Serious: Yes (Death, Life-Threatening, Hospitalization, Other)
  Sender: FDA-Public Use
  Company Number: AU-MICRO LABS LIMITED-ML2020-02301

PATIENT
  Age: 63 Year
  Sex: Male

DRUGS (17)
  1. FLUVOXAMINE [Concomitant]
     Active Substance: FLUVOXAMINE
  2. SIMVASTATIN. [Concomitant]
     Active Substance: SIMVASTATIN
  3. CLINDAMYCIN. [Suspect]
     Active Substance: CLINDAMYCIN
     Indication: ENTEROCOCCAL INFECTION
  4. INSULIN GLARGINE [Concomitant]
     Active Substance: INSULIN GLARGINE
     Indication: TYPE 2 DIABETES MELLITUS
  5. HEPARIN [Concomitant]
     Active Substance: HEPARIN SODIUM
     Indication: PORTAL VEIN THROMBOSIS
  6. CLINDAMYCIN. [Suspect]
     Active Substance: CLINDAMYCIN
     Indication: CLOSTRIDIAL INFECTION
     Dosage: RECEIVED 3RD, 4TH AND 5TH DAYS OF HOSPITALIZATION
  7. LOW?DOSE ASPIRIN [Concomitant]
     Active Substance: ASPIRIN
  8. MEROPENEM. [Suspect]
     Active Substance: MEROPENEM
     Indication: CLOSTRIDIAL INFECTION
     Dosage: RECEIVED 4TH, 5TH DAYS OF HOSPITALIZATION
  9. BISOPROLOL [Concomitant]
     Active Substance: BISOPROLOL
  10. FENOFIBRATE. [Concomitant]
     Active Substance: FENOFIBRATE
  11. PIPERACILLIN/TAZOBACTAM [Suspect]
     Active Substance: PIPERACILLIN SODIUM\TAZOBACTAM SODIUM
     Indication: ENTEROCOCCAL INFECTION
     Dosage: RECEIVED 4TH AND 5TH DAY OF HOSPITALIZATION (RENALLY ADJUSTED DOSE)
     Route: 042
  12. MEROPENEM. [Suspect]
     Active Substance: MEROPENEM
     Indication: ENTEROCOCCAL INFECTION
  13. GLICLAZIDE MR [Concomitant]
     Active Substance: GLICLAZIDE
  14. PIPERACILLIN/TAZOBACTAM [Suspect]
     Active Substance: PIPERACILLIN SODIUM\TAZOBACTAM SODIUM
     Indication: CLOSTRIDIAL INFECTION
     Dosage: RECEIVED 2ND, 3RD  DAYS OF HOSPITALIZATION
     Route: 042
  15. VANCOMYCIN [Suspect]
     Active Substance: VANCOMYCIN
     Indication: CLOSTRIDIAL INFECTION
     Dosage: 2.5 G LOADING DOSE THEN CONTINUOUS INFUSION. RECEIVED 3RD, 4TH, 5TH DAY OF HOSPITALIZATION
  16. FLUTICASONE/SALMETEROL [Concomitant]
     Active Substance: FLUTICASONE PROPIONATE\SALMETEROL XINAFOATE
  17. VANCOMYCIN [Suspect]
     Active Substance: VANCOMYCIN
     Indication: ENTEROCOCCAL INFECTION

REACTIONS (1)
  - Drug ineffective [Fatal]
